FAERS Safety Report 15362245 (Version 1)
Quarter: 2018Q3

REPORT INFORMATION
  Report Type: Spontaneous
  Country: FR (occurrence: FR)
  Receive Date: 20180907
  Receipt Date: 20180907
  Transmission Date: 20181010
  Serious: Yes (Other)
  Sender: FDA-Public Use
  Company Number: FR-PFIZER INC-2018353442

PATIENT
  Sex: Female

DRUGS (4)
  1. EFFEXOR LP [Suspect]
     Active Substance: VENLAFAXINE HYDROCHLORIDE
     Dosage: UNK
  2. PROZAC [Suspect]
     Active Substance: FLUOXETINE HYDROCHLORIDE
     Dosage: 20 MG, 1X/DAY
  3. XANAX [Concomitant]
     Active Substance: ALPRAZOLAM
     Dosage: UNK
  4. NOCTAMIDE [Concomitant]
     Active Substance: LORMETAZEPAM
     Dosage: UNK

REACTIONS (10)
  - Vision blurred [Unknown]
  - Head discomfort [Unknown]
  - Weight increased [Unknown]
  - Hot flush [Unknown]
  - Nausea [Unknown]
  - Dizziness [Unknown]
  - Suicidal ideation [Unknown]
  - Malaise [Unknown]
  - Crying [Unknown]
  - Hyperhidrosis [Unknown]
